FAERS Safety Report 6645900-7 (Version None)
Quarter: 2010Q1

REPORT INFORMATION
  Report Type: 
  Country: None (occurrence: None)
  Receive Date: 20100323
  Receipt Date: 20100312
  Transmission Date: 20100710
  Serious: Yes (Hospitalization)
  Sender: FDA-Public Use
  Company Number: PHHY2010GB16282

PATIENT
  Sex: Female

DRUGS (2)
  1. CLOZARIL [Suspect]
     Indication: SCHIZOPHRENIA
     Dosage: UNK
     Dates: start: 20090624
  2. WARFARIN SODIUM [Concomitant]

REACTIONS (3)
  - POLYPECTOMY [None]
  - UTERINE POLYP [None]
  - VAGINAL HAEMORRHAGE [None]
